FAERS Safety Report 6532364-7 (Version None)
Quarter: 2010Q1

REPORT INFORMATION
  Report Type: 
  Country: None (occurrence: None)
  Receive Date: 20100108
  Receipt Date: 20091229
  Transmission Date: 20100710
  Serious: Yes (Hospitalization, Other)
  Sender: FDA-Public Use
  Company Number: JP-PFIZER INC-2009287221

PATIENT
  Age: 57 Year
  Sex: Female

DRUGS (4)
  1. ZOLOFT [Suspect]
     Indication: DEPRESSION
     Dosage: 25 MG, 1X/DAY
     Route: 048
     Dates: start: 20070824, end: 20091007
  2. NORVASC [Concomitant]
     Dosage: UNK
     Route: 048
     Dates: start: 20070727
  3. LENDORMIN [Concomitant]
     Dosage: UNK
     Route: 048
     Dates: start: 20070914
  4. HALCION [Concomitant]
     Dosage: UNK
     Route: 048
     Dates: start: 20071109

REACTIONS (6)
  - ALTERED STATE OF CONSCIOUSNESS [None]
  - HEADACHE [None]
  - HYPONATRAEMIA [None]
  - MYOCLONIC EPILEPSY [None]
  - RESTLESSNESS [None]
  - STUPOR [None]
